FAERS Safety Report 4398160-4 (Version None)
Quarter: 2004Q3

REPORT INFORMATION
  Report Type: 
  Country: None (occurrence: None)
  Receive Date: 20040713
  Receipt Date: 20040629
  Transmission Date: 20050211
  Serious: Yes (Hospitalization)
  Sender: FDA-Public Use
  Company Number: 2004222439JP

PATIENT
  Age: 75 Year
  Sex: Male

DRUGS (5)
  1. CAMPTOSAR [Suspect]
     Indication: SMALL CELL LUNG CANCER STAGE UNSPECIFIED
     Dosage: 60 MG/M2, CYCLIC, IV DRIP
     Route: 041
     Dates: start: 20040622, end: 20040622
  2. CISPLATIN [Concomitant]
  3. PANTOSIN (PANTHETHINE) [Concomitant]
  4. MAGNESIUM OXIDE [Concomitant]
  5. MS CONTIN [Concomitant]

REACTIONS (3)
  - ABDOMINAL PAIN [None]
  - MELAENA [None]
  - PAIN [None]
